FAERS Safety Report 7545031-8 (Version None)
Quarter: 2011Q2

REPORT INFORMATION
  Report Type: 
  Country: None (occurrence: None)
  Receive Date: 20110614
  Receipt Date: 20110526
  Transmission Date: 20111010
  Serious: Yes (Hospitalization, Other)
  Sender: FDA-Public Use
  Company Number: US-BAYER-201038042NA

PATIENT
  Age: 21 Year
  Sex: Female
  Weight: 99.773 kg

DRUGS (5)
  1. YAZ [Suspect]
     Indication: ACNE
     Dosage: UNK
     Dates: start: 20010101, end: 20080101
  2. YAZ [Suspect]
     Indication: PREMENSTRUAL SYNDROME
  3. YASMIN [Suspect]
     Indication: PREMENSTRUAL SYNDROME
  4. DROSPIRENONE AND ETHINYL ESTRADIOL [Suspect]
     Indication: ACNE
  5. YASMIN [Suspect]
     Indication: ACNE
     Dosage: UNK
     Dates: start: 20020101, end: 20080101

REACTIONS (10)
  - GALLBLADDER DISORDER [None]
  - VOMITING [None]
  - FLATULENCE [None]
  - INJURY [None]
  - ABDOMINAL DISTENSION [None]
  - CHOLECYSTITIS [None]
  - BILIARY DYSKINESIA [None]
  - FATIGUE [None]
  - ABDOMINAL TENDERNESS [None]
  - ABDOMINAL PAIN UPPER [None]
